FAERS Safety Report 22169507 (Version 1)
Quarter: 2023Q2

REPORT INFORMATION
  Report Type: Spontaneous
  Country: US (occurrence: None)
  Receive Date: 20230404
  Receipt Date: 20230404
  Transmission Date: 20230721
  Serious: No
  Sender: FDA-Public Use
  Company Number: US-ADAMAS Pharma-ADM202208-002467

PATIENT
  Age: 77 Year
  Sex: Female
  Weight: 74.39 kg

DRUGS (2)
  1. OSMOLEX ER [Suspect]
     Active Substance: AMANTADINE
     Indication: Parkinson^s disease
  2. CARBIDOPA [Suspect]
     Active Substance: CARBIDOPA
     Indication: Dyskinesia
     Dosage: NOT PROVIDED

REACTIONS (2)
  - Somnolence [Unknown]
  - Dizziness [Unknown]
